FAERS Safety Report 6690837-0 (Version None)
Quarter: 2010Q2

REPORT INFORMATION
  Report Type: 
  Country: None (occurrence: None)
  Receive Date: 20100421
  Receipt Date: 20100416
  Transmission Date: 20101027
  Serious: Yes (Hospitalization)
  Sender: FDA-Public Use
  Company Number: DE-SANOFI-AVENTIS-2010SA020378

PATIENT
  Age: 71 Year
  Sex: Male

DRUGS (7)
  1. OXALIPLATIN [Suspect]
     Route: 041
     Dates: start: 20091130, end: 20091130
  2. BEVACIZUMAB [Suspect]
     Route: 041
     Dates: start: 20091130, end: 20091130
  3. FLUOROURACIL [Suspect]
     Route: 040
     Dates: start: 20091130, end: 20091130
  4. FLUOROURACIL [Suspect]
     Route: 041
     Dates: start: 20091130, end: 20091130
  5. FOLINIC ACID [Suspect]
     Route: 041
     Dates: start: 20091130, end: 20091130
  6. ONDANSETRON [Concomitant]
     Indication: DRUG USE FOR UNKNOWN INDICATION
  7. DEXAMETHASONE [Concomitant]
     Indication: DRUG USE FOR UNKNOWN INDICATION

REACTIONS (3)
  - BRAIN OEDEMA [None]
  - CONVULSION [None]
  - HYPERTENSIVE ENCEPHALOPATHY [None]
